FAERS Safety Report 4748931-7 (Version None)
Quarter: 2005Q3

REPORT INFORMATION
  Report Type: 
  Country: None (occurrence: None)
  Receive Date: 20050812
  Receipt Date: 20050602
  Transmission Date: 20060218
  Serious: Yes (Other)
  Sender: FDA-Public Use
  Company Number: 378339

PATIENT
  Age: 46 Year
  Sex: Female
  Weight: 73.5 kg

DRUGS (4)
  1. PEGASYS [Suspect]
     Indication: DRUG USE FOR UNKNOWN INDICATION
     Dosage: 180 MCG 1 PER WEEK SUBCUTANEOUS
     Route: 058
     Dates: start: 20040615, end: 20050510
  2. COPEGUS [Suspect]
     Indication: DRUG USE FOR UNKNOWN INDICATION
     Dosage: 1200 MG DAILY ORAL
     Route: 048
     Dates: start: 20040615, end: 20050510
  3. LISINOPRIL [Concomitant]
  4. ALLEGRA-D [Concomitant]

REACTIONS (13)
  - ABDOMINAL PAIN [None]
  - ABDOMINAL PAIN UPPER [None]
  - AMNESIA [None]
  - CHEST PAIN [None]
  - CHOLELITHIASIS [None]
  - DEPRESSION [None]
  - FATIGUE [None]
  - ILL-DEFINED DISORDER [None]
  - INSOMNIA [None]
  - LACK OF SPONTANEOUS SPEECH [None]
  - NASAL CONGESTION [None]
  - RASH [None]
  - TREMOR [None]
